FAERS Safety Report 5399068-8 (Version None)
Quarter: 2007Q3

REPORT INFORMATION
  Report Type: 
  Country: None (occurrence: None)
  Receive Date: 20070725
  Receipt Date: 20070725
  Transmission Date: 20080115
  Serious: Yes (Hospitalization)
  Sender: FDA-Public Use
  Company Number: None

PATIENT
  Age: 54 Year
  Sex: Female
  Weight: 97.977 kg

DRUGS (5)
  1. SUTENT [Suspect]
     Indication: METASTATIC MALIGNANT MELANOMA
     Dosage: 37.5MG QD ORAL
     Route: 048
     Dates: start: 20070530, end: 20070711
  2. SYNTHROID [Concomitant]
  3. PREVACID [Concomitant]
  4. PROZAC [Concomitant]
  5. ALPHAGAN P [Concomitant]

REACTIONS (11)
  - ANOREXIA [None]
  - BACK PAIN [None]
  - CONJUNCTIVITIS [None]
  - DIARRHOEA [None]
  - FLATULENCE [None]
  - GASTROINTESTINAL HYPERMOTILITY [None]
  - GINGIVAL BLEEDING [None]
  - NAUSEA [None]
  - PANCYTOPENIA [None]
  - VOMITING [None]
  - WEIGHT DECREASED [None]
